FAERS Safety Report 7755811-1 (Version None)
Quarter: 2011Q3

REPORT INFORMATION
  Report Type: 
  Country: None (occurrence: None)
  Receive Date: 20110915
  Receipt Date: 20110915
  Transmission Date: 20111222
  Serious: Yes (Hospitalization)
  Sender: FDA-Public Use
  Company Number: None

PATIENT
  Age: 60 Year
  Sex: Male
  Weight: 94.9 kg

DRUGS (2)
  1. LISINOPRIL AND HYDROCHLOROTHIAZIDE [Suspect]
     Indication: HYPERTENSION
     Dosage: MG BID PO
     Route: 048
     Dates: start: 20110829, end: 20110905
  2. LITHIUM CARBONATE [Suspect]
     Indication: SCHIZOPHRENIA, PARANOID TYPE
     Dosage: MG BID PO
     Route: 048
     Dates: start: 20020628, end: 20110905

REACTIONS (4)
  - MENTAL STATUS CHANGES [None]
  - NEPHROGENIC DIABETES INSIPIDUS [None]
  - TOXICITY TO VARIOUS AGENTS [None]
  - CONFUSIONAL STATE [None]
